FAERS Safety Report 8900877 (Version 2)
Quarter: 2013Q1

REPORT INFORMATION
  Report Type: Report from Study
  Country: BR (occurrence: BR)
  Receive Date: 20121109
  Receipt Date: 20130319
  Transmission Date: 20140127
  Serious: Yes (Death)
  Sender: FDA-Public Use
  Company Number: BR-ABBOTT-12P-020-1006638-00

PATIENT
  Sex: Female

DRUGS (3)
  1. HUMIRA [Suspect]
     Indication: RHEUMATOID ARTHRITIS
     Route: 058
     Dates: start: 20101001
  2. UNKNOWN DRUG [Concomitant]
     Indication: HYPERTENSION
  3. UNKNOWN DRUG [Concomitant]
     Indication: HYPERTENSION

REACTIONS (9)
  - Acute myocardial infarction [Fatal]
  - Asthenia [Unknown]
  - Cardiogenic shock [Fatal]
  - Coronary artery thrombosis [Fatal]
  - Coronary artery disease [Fatal]
  - Hypertension [Fatal]
  - Haemorrhage [Fatal]
  - Diabetes mellitus [Fatal]
  - Rheumatoid arthritis [Unknown]
